FAERS Safety Report 25046364 (Version 1)
Quarter: 2025Q1

REPORT INFORMATION
  Report Type: Report from Study
  Country: MY (occurrence: MY)
  Receive Date: 20250306
  Receipt Date: 20250306
  Transmission Date: 20250408
  Serious: Yes (Death, Other)
  Sender: PFIZER
  Company Number: MY-TAKEDA-2024TUS030518

PATIENT
  Age: 30 Year
  Sex: Female
  Weight: 31.5 kg

DRUGS (2)
  1. ADCETRIS [Suspect]
     Active Substance: BRENTUXIMAB VEDOTIN
     Indication: Hodgkin^s disease refractory
     Dosage: 50 MILLIGRAM, Q3WEEKS
     Route: 042
     Dates: start: 20230809
  2. ADCETRIS [Suspect]
     Active Substance: BRENTUXIMAB VEDOTIN
     Dosage: 100 MILLIGRAM, Q3WEEKS
     Route: 042

REACTIONS (3)
  - Death [Fatal]
  - Weight increased [Unknown]
  - Infection [Unknown]

NARRATIVE: CASE EVENT DATE: 20241001
